FAERS Safety Report 7829939-1 (Version None)
Quarter: 2011Q4

REPORT INFORMATION
  Report Type: 
  Country: None (occurrence: None)
  Receive Date: 20111021
  Receipt Date: 20110930
  Transmission Date: 20120403
  Serious: Yes (Other)
  Sender: FDA-Public Use
  Company Number: US-BAYER-2011-082433

PATIENT
  Age: 24 Year
  Sex: Female
  Weight: 126.8 kg

DRUGS (5)
  1. METFORMIN HCL [Concomitant]
     Dosage: UNK UNK, TID
     Route: 048
  2. RANITIDINE [Concomitant]
     Dosage: 300 MG, QD
     Route: 048
  3. VICODIN [Concomitant]
     Dosage: UNK UNK, PRN
     Route: 048
  4. YASMIN [Suspect]
     Dosage: UNK
     Dates: start: 20050925, end: 20070211
  5. NITROFURANTOIN-MACRO [Concomitant]
     Dosage: 100 MG, UNK
     Route: 048
     Dates: start: 20081120

REACTIONS (5)
  - CHOLECYSTITIS INFECTIVE [None]
  - GALLBLADDER DISORDER [None]
  - CHOLECYSTITIS CHRONIC [None]
  - INJURY [None]
  - PAIN [None]
